FAERS Safety Report 18507186 (Version 1)
Quarter: 2020Q4

REPORT INFORMATION
  Report Type: Spontaneous
  Country: SE (occurrence: SE)
  Receive Date: 20201116
  Receipt Date: 20201116
  Transmission Date: 20210114
  Serious: Yes (Hospitalization)
  Sender: FDA-Public Use
  Company Number: SE-PERRIGO-20SE016402

PATIENT
  Age: 57 Year
  Sex: Female

DRUGS (11)
  1. TARGINIQ ER [Suspect]
     Active Substance: NALOXONE HYDROCHLORIDE\OXYCODONE HYDROCHLORIDE
     Indication: SUICIDE ATTEMPT
     Route: 065
     Dates: start: 20150920, end: 20150920
  2. PARACETAMOL [Suspect]
     Active Substance: ACETAMINOPHEN
     Indication: SUICIDE ATTEMPT
     Route: 065
     Dates: start: 20150920, end: 20150920
  3. NAPROXEN. [Suspect]
     Active Substance: NAPROXEN
     Indication: SUICIDE ATTEMPT
     Route: 065
     Dates: start: 20150920, end: 20150920
  4. OXYCODONE [Concomitant]
     Active Substance: OXYCODONE
     Indication: SUICIDE ATTEMPT
     Route: 065
     Dates: start: 201509
  5. SOBRIL [Concomitant]
     Active Substance: OXAZEPAM
     Indication: SUICIDE ATTEMPT
     Route: 065
     Dates: start: 201509
  6. RINGER ACETATE [Concomitant]
     Active Substance: CALCIUM CHLORIDE\POTASSIUM CHLORIDE\SODIUM ACETATE
     Indication: HYPOTENSION
     Route: 042
     Dates: start: 201509
  7. OXAZEPAM. [Suspect]
     Active Substance: OXAZEPAM
     Indication: SUICIDE ATTEMPT
     Route: 065
     Dates: start: 20150920, end: 20150920
  8. OMEPRAZOL                          /00661201/ [Suspect]
     Active Substance: OMEPRAZOLE
     Indication: SUICIDE ATTEMPT
     Route: 065
     Dates: start: 20150920, end: 20150920
  9. OXASCAND [Suspect]
     Active Substance: OXAZEPAM
     Indication: SUICIDE ATTEMPT
     Route: 065
     Dates: start: 20150920, end: 20150920
  10. VALERIAN ROOT                      /01561603/ [Suspect]
     Active Substance: VALERIAN
     Indication: SUICIDE ATTEMPT
     Route: 065
     Dates: start: 20150920, end: 20150920
  11. NALOXONE [Suspect]
     Active Substance: NALOXONE
     Indication: SUICIDE ATTEMPT
     Route: 065
     Dates: start: 20150920, end: 20150920

REACTIONS (4)
  - Electrocardiogram QT prolonged [Recovered/Resolved]
  - Toxicity to various agents [Recovered/Resolved]
  - Hypotension [Recovered/Resolved]
  - Intentional self-injury [Recovered/Resolved]

NARRATIVE: CASE EVENT DATE: 20150920
